FAERS Safety Report 8619356-9 (Version None)
Quarter: 2012Q3

REPORT INFORMATION
  Report Type: 
  Country: None (occurrence: None)
  Receive Date: 20120824
  Receipt Date: 20120731
  Transmission Date: 20120928
  Serious: Yes (Life-Threatening, Hospitalization, Other)
  Sender: FDA-Public Use
  Company Number: JP-009507513-2012SP024677

PATIENT

DRUGS (39)
  1. ADALAT CC [Concomitant]
     Dosage: 60 UNK, UNK
     Route: 048
     Dates: start: 20120417
  2. OLMESARTAN MEDOXOMIL [Concomitant]
     Indication: HYPERTENSION
     Dosage: 40 MG, ONCE
     Route: 048
     Dates: end: 20120412
  3. OLMESARTAN MEDOXOMIL [Concomitant]
     Dosage: 40 UNK, UNK
     Route: 048
     Dates: start: 20120421
  4. LOXONIN [Concomitant]
     Dosage: 120 MG, QD
     Route: 048
  5. LOXONIN [Concomitant]
     Dosage: 120 MG, ONCE
     Route: 048
  6. ADALAT CC [Concomitant]
     Dosage: 60 MG, ONCE
     Route: 048
     Dates: end: 20120412
  7. ADALAT CC [Concomitant]
     Dosage: 60 MG, ONCE
     Route: 048
     Dates: start: 20120417
  8. GLYCYRON [Concomitant]
     Dosage: 6 DF, ONCE
     Route: 048
     Dates: start: 20120614, end: 20120704
  9. PEG-INTRON [Suspect]
     Indication: HEPATITIS C
     Dosage: 1.5MCG/KG/WEEK
     Route: 058
     Dates: start: 20120410, end: 20120416
  10. DOXAZOSIN MESYLATE [Concomitant]
     Dosage: 1 UNK, UNK
     Route: 048
     Dates: start: 20120424
  11. METFORMIN HCL [Concomitant]
     Dosage: 1500 UNK, UNK
     Route: 048
     Dates: start: 20120424
  12. KINEDAK [Concomitant]
     Route: 048
     Dates: start: 20120424
  13. REBETOL [Suspect]
     Indication: HEPATITIS C
     Dosage: 800 MG, QD
     Route: 048
     Dates: start: 20120410, end: 20120412
  14. ADALAT CC [Concomitant]
     Indication: HYPERTENSION
     Dosage: 60 MG, QD
     Route: 048
     Dates: end: 20120412
  15. NESINA [Concomitant]
     Dosage: 25 UNK, UNK
     Route: 048
     Dates: start: 20120424
  16. LOXONIN [Concomitant]
     Indication: NEURALGIA
     Dosage: 60 MG, PRN
     Route: 065
     Dates: start: 20120410, end: 20120416
  17. POTASSIUM CHLORIDE [Concomitant]
     Indication: PRODUCT USED FOR UNKNOWN INDICATION
     Dosage: 40 ML, QD
     Route: 042
     Dates: start: 20120417, end: 20120421
  18. TRICHLORMETHIAZIDE [Concomitant]
     Dosage: 1 UNK, UNK
     Route: 048
     Dates: start: 20120424
  19. AMARYL [Concomitant]
     Indication: TYPE 2 DIABETES MELLITUS
     Dosage: 0.5 MG, ONCE
     Route: 048
     Dates: end: 20120412
  20. LENDORMIN [Concomitant]
     Indication: INSOMNIA
     Dosage: 0.25 MG, QD
     Route: 048
  21. ALLOPURINOL [Concomitant]
     Indication: PRODUCT USED FOR UNKNOWN INDICATION
     Dosage: 100 MG, QD
     Route: 048
     Dates: start: 20120413, end: 20120416
  22. TRICHLORMETHIAZIDE [Concomitant]
     Indication: HYPERTENSION
     Dosage: 1 MG, ONCE
     Route: 048
     Dates: end: 20120412
  23. VITAMIN E [Concomitant]
     Indication: NEUROPATHY PERIPHERAL
     Dosage: 600 MG, ONCE
     Route: 048
     Dates: start: 20120424
  24. PRIMPERAN TAB [Concomitant]
     Indication: PRODUCT USED FOR UNKNOWN INDICATION
     Dosage: 10 MG, PRN
     Route: 042
     Dates: start: 20120412, end: 20120419
  25. GLYCYRON [Suspect]
     Indication: HEPATITIS C
     Dosage: 6 DF, QD
     Route: 048
     Dates: start: 20120614, end: 20120704
  26. AMARYL [Concomitant]
     Dosage: 0.5 UNK, UNK
     Route: 048
     Dates: start: 20120424
  27. LOXONIN [Concomitant]
     Dosage: 60 UNK, UNK
     Route: 048
     Dates: start: 20120424
  28. REBETOL [Suspect]
     Dosage: 600 MG, QD
     Route: 048
     Dates: start: 20120413, end: 20120416
  29. TELAVIC [Suspect]
     Indication: HEPATITIS C
     Dosage: 2250 MG, QD
     Route: 048
     Dates: start: 20120410, end: 20120416
  30. METFORMIN HCL [Concomitant]
     Indication: TYPE 2 DIABETES MELLITUS
     Dosage: 1500 MG, ONCE
     Route: 048
     Dates: end: 20120412
  31. KINEDAK [Concomitant]
     Indication: NEUROPATHY PERIPHERAL
     Dosage: 150 MG, ONCE
     Route: 048
     Dates: end: 20120412
  32. ROHYPNOL [Concomitant]
     Indication: INSOMNIA
     Dosage: 1 MG, ONCE
     Route: 048
     Dates: start: 20120418
  33. DOXAZOSIN MESYLATE [Concomitant]
     Indication: HYPERTENSION
     Dosage: 1 MG, ONCE
     Route: 048
     Dates: end: 20120412
  34. NESINA [Concomitant]
     Indication: TYPE 2 DIABETES MELLITUS
     Dosage: 25 MG, ONCE
     Route: 048
     Dates: end: 20120412
  35. URSO 250 [Concomitant]
     Indication: HEPATITIS C
     Dosage: 600 MG, ONCE
     Route: 048
     Dates: start: 20120424
  36. VITAMIN B12 [Concomitant]
     Indication: NEUROPATHY PERIPHERAL
     Dosage: 1500 MG, ONCE
     Route: 048
     Dates: start: 20120424
  37. ELECTROLYTES (UNSPECIFIED) (+) SODIUM LACTATE [Concomitant]
     Indication: PRODUCT USED FOR UNKNOWN INDICATION
     Dosage: 1000 ML, QD
     Route: 042
     Dates: start: 20120413, end: 20120421
  38. LYRICA [Concomitant]
     Indication: NEUROPATHY PERIPHERAL
     Dosage: 25 MG, QD
     Route: 048
     Dates: start: 20120531, end: 20120614
  39. LENDORMIN D [Concomitant]
     Indication: INSOMNIA
     Dosage: 0.25 MG, ONCE
     Route: 048

REACTIONS (5)
  - GENERAL PHYSICAL HEALTH DETERIORATION [None]
  - NAUSEA [None]
  - RENAL IMPAIRMENT [None]
  - VOMITING [None]
  - DIZZINESS [None]
